FAERS Safety Report 5795528-6 (Version None)
Quarter: 2008Q2

REPORT INFORMATION
  Report Type: 
  Country: None (occurrence: None)
  Receive Date: 20080630
  Receipt Date: 20080618
  Transmission Date: 20081010
  Serious: Yes (Other)
  Sender: FDA-Public Use
  Company Number: PHHY2008BR11766

PATIENT
  Sex: Female
  Weight: 52 kg

DRUGS (5)
  1. FORASEQ [Suspect]
     Indication: DYSPNOEA
     Dosage: 12/400MCG, ONCE A DAY
     Dates: start: 20060601
  2. FORASEQ [Suspect]
     Dosage: 12/400MCG, TWICE A DAY
     Dates: start: 20070101, end: 20080525
  3. HORMONES NOS [Concomitant]
     Dosage: CHANGE EVERY 4 DAYS
     Route: 062
     Dates: start: 20080101
  4. HYDROXYZINE [Concomitant]
     Indication: HYPERSENSITIVITY
     Dosage: DURING 2 DAYS, WHEN NEEDED
     Dates: start: 20040101
  5. SERETIDE [Concomitant]
     Indication: DYSPNOEA

REACTIONS (5)
  - MYALGIA [None]
  - PAIN [None]
  - PULMONARY CALCIFICATION [None]
  - SWELLING [None]
  - WEIGHT INCREASED [None]
